FAERS Safety Report 11948130 (Version 1)
Quarter: 2016Q1

REPORT INFORMATION
  Report Type: Spontaneous
  Country: DK (occurrence: DK)
  Receive Date: 20160125
  Receipt Date: 20160125
  Transmission Date: 20160526
  Serious: Yes (Other)
  Sender: FDA-Public Use
  Company Number: DK-CELGENE-DNK-2016012672

PATIENT

DRUGS (1)
  1. AZACITIDINE INJECTABLE [Suspect]
     Active Substance: AZACITIDINE
     Indication: PRODUCT USED FOR UNKNOWN INDICATION
     Route: 065

REACTIONS (11)
  - Plasma cell myeloma [Unknown]
  - Bone marrow failure [Unknown]
  - Fall [Unknown]
  - Back pain [Unknown]
  - Febrile neutropenia [Unknown]
  - Night sweats [Unknown]
  - Infection [Unknown]
  - Skin discolouration [Unknown]
  - Injection site reaction [Unknown]
  - Pulmonary embolism [Unknown]
  - Fibrosis [Unknown]
